FAERS Safety Report 8245220-3 (Version None)
Quarter: 2012Q1

REPORT INFORMATION
  Report Type: 
  Country: None (occurrence: None)
  Receive Date: 20120329
  Receipt Date: 20120319
  Transmission Date: 20120608
  Serious: Yes (Disabling)
  Sender: FDA-Public Use
  Company Number: PHHY2011JP70383

PATIENT
  Age: 52 Year
  Sex: Female

DRUGS (10)
  1. SALAGEN [Suspect]
     Indication: APTYALISM
     Dosage: 3 DF, TID
     Route: 048
     Dates: start: 20110604, end: 20110606
  2. TS 1 [Concomitant]
     Route: 048
  3. METHYCOBAL [Concomitant]
     Route: 048
  4. LOXONIN [Concomitant]
     Route: 048
  5. MARZULENE [Concomitant]
     Route: 048
  6. PURSENNID [Concomitant]
     Route: 048
  7. HOCHUUEKKITOU [Concomitant]
     Route: 048
  8. MEDROXYPROGESTERONE ACETATE [Concomitant]
     Route: 048
  9. ZOMETA [Concomitant]
     Route: 042
  10. OXYCONTIN [Concomitant]
     Route: 048

REACTIONS (2)
  - OPTIC NEURITIS [None]
  - VISUAL ACUITY REDUCED [None]
